FAERS Safety Report 14055482 (Version 1)
Quarter: 2017Q4

REPORT INFORMATION
  Report Type: Report from Study
  Country: US (occurrence: US)
  Receive Date: 20171006
  Receipt Date: 20171006
  Transmission Date: 20180321
  Serious: Yes (Hospitalization, Other)
  Sender: FDA-Public Use
  Company Number: US-SUN PHARMACEUTICAL INDUSTRIES LTD-2017US-140239

PATIENT
  Age: 59 Year
  Sex: Female

DRUGS (1)
  1. QUININE [Suspect]
     Active Substance: QUININE
     Indication: PRODUCT USED FOR UNKNOWN INDICATION
     Dosage: UNK
     Route: 048

REACTIONS (10)
  - Cinchonism [Unknown]
  - Retinal degeneration [Unknown]
  - Night blindness [Unknown]
  - Optic atrophy [Unknown]
  - Blindness [Unknown]
  - Retinal toxicity [Unknown]
  - Retinal disorder [Unknown]
  - Retinal pigment epitheliopathy [Unknown]
  - Overdose [Unknown]
  - Maculopathy [Unknown]
